FAERS Safety Report 8480928-6 (Version None)
Quarter: 2012Q3

REPORT INFORMATION
  Report Type: 
  Country: None (occurrence: None)
  Receive Date: 20120702
  Receipt Date: 20120622
  Transmission Date: 20120928
  Serious: Yes (Hospitalization)
  Sender: FDA-Public Use
  Company Number: US-BAYER-2012-021312

PATIENT
  Age: 23 Year
  Sex: Female
  Weight: 58.957 kg

DRUGS (3)
  1. YAZ [Suspect]
     Indication: ACNE
     Dosage: UNK
     Dates: start: 20080301, end: 20101031
  2. MULTI-VITAMIN [Concomitant]
     Indication: ROUTINE HEALTH MAINTENANCE
     Dosage: DAILY
  3. YAZ [Suspect]
     Indication: CONTRACEPTION

REACTIONS (3)
  - INJURY [None]
  - PAIN [None]
  - PULMONARY EMBOLISM [None]
